FAERS Safety Report 17676564 (Version 1)
Quarter: 2020Q2

REPORT INFORMATION
  Report Type: Spontaneous
  Country: US (occurrence: US)
  Receive Date: 20200416
  Receipt Date: 20200416
  Transmission Date: 20200714
  Serious: Yes (Death)
  Sender: FDA-Public Use
  Company Number: US-GENERICUS, INC.-2020GNR00015

PATIENT
  Age: 48 Year
  Sex: Male

DRUGS (1)
  1. TOBRAMYCIN. [Suspect]
     Active Substance: TOBRAMYCIN
     Indication: TRACHEOSTOMY
     Dosage: 300 MG/5ML, 2X/DAY, 28 DAYS ON 28 DAYS OFF
     Dates: start: 20190809

REACTIONS (1)
  - Death [Fatal]

NARRATIVE: CASE EVENT DATE: 202003
